FAERS Safety Report 19880564 (Version 1)
Quarter: 2021Q3

REPORT INFORMATION
  Report Type: Spontaneous
  Country: FI (occurrence: FI)
  Receive Date: 20210924
  Receipt Date: 20210924
  Transmission Date: 20211014
  Serious: Yes (Other)
  Sender: FDA-Public Use
  Company Number: FI-MYLANLABS-2021M1064873

PATIENT
  Age: 68 Year
  Sex: Female

DRUGS (6)
  1. IMNOVID [Suspect]
     Active Substance: POMALIDOMIDE
     Dosage: 4 MILLIGRAM, QD
     Route: 065
     Dates: start: 202008
  2. POMALIDOMIDE [Suspect]
     Active Substance: POMALIDOMIDE
     Indication: PLASMA CELL MYELOMA
     Dosage: UNK
     Route: 065
  3. EMPLICITI [Suspect]
     Active Substance: ELOTUZUMAB
     Dosage: 900 MILLIGRAM, Q4WEEK (900 MILLIGRAM, Q4WK)
     Route: 042
     Dates: start: 20201016
  4. IMNOVID [Suspect]
     Active Substance: POMALIDOMIDE
     Indication: PLASMA CELL MYELOMA
     Dosage: 3 MILLIGRAM, QD (3MG ONCE DAILY (CYCLE D1?D21))
     Route: 065
  5. DEXAMETHASONE. [Suspect]
     Active Substance: DEXAMETHASONE
     Indication: PLASMA CELL MYELOMA
     Dosage: UNK
     Route: 065
  6. EMPLICITI [Suspect]
     Active Substance: ELOTUZUMAB
     Indication: PLASMA CELL MYELOMA
     Dosage: 480MG IN DAYS 1, 8, 15 AND 22
     Route: 042
     Dates: start: 202008

REACTIONS (3)
  - Erythema [Recovered/Resolved]
  - Muscle spasms [Unknown]
  - Cytomegalovirus infection [Recovered/Resolved]
